FAERS Safety Report 18152970 (Version 2)
Quarter: 2020Q3

REPORT INFORMATION
  Report Type: Spontaneous
  Country: US (occurrence: US)
  Receive Date: 20200814
  Receipt Date: 20200821
  Transmission Date: 20201103
  Serious: Yes (Other)
  Sender: FDA-Public Use
  Company Number: US-SA-2020SA211084

PATIENT

DRUGS (1)
  1. TRIAMCINOLONE ACETONIDE. [Suspect]
     Active Substance: TRIAMCINOLONE ACETONIDE
     Indication: CYSTOID MACULAR OEDEMA
     Dosage: INJECTION, 4 MG/0.1 ML OF TRIAMCINOLONE ACETONIDE TO THE RIGHT EYE
     Route: 031

REACTIONS (4)
  - Visual impairment [Recovering/Resolving]
  - Choroidal detachment [Recovering/Resolving]
  - Blindness [Recovering/Resolving]
  - Eye pain [Recovering/Resolving]
